FAERS Safety Report 18842432 (Version 4)
Quarter: 2024Q3

REPORT INFORMATION
  Report Type: Spontaneous
  Country: IR (occurrence: IR)
  Receive Date: 20210203
  Receipt Date: 20240915
  Transmission Date: 20241016
  Serious: Yes (Hospitalization)
  Sender: JOHNSON AND JOHNSON
  Company Number: IR-JNJFOC-20210140987

PATIENT
  Age: 17 Year
  Sex: Male

DRUGS (3)
  1. TRACLEER [Suspect]
     Active Substance: BOSENTAN
     Indication: Pulmonary arterial hypertension
     Dosage: THE PATIENT STOPPED THE CONSUMPTION OF THE DRUG FOR A WEEK DUE TO THE LACK OF MEDICATION IN HIS CITY
     Route: 065
  2. TRACLEER [Suspect]
     Active Substance: BOSENTAN
     Dosage: THE PATIENT STARTED TAKING BOSENTAN AGAIN AFTER A WEEK OF DISCONTINUATION
     Route: 065
  3. TADALAFIL [Suspect]
     Active Substance: TADALAFIL
     Indication: Pulmonary arterial hypertension
     Dosage: STARTED 3 MONTHS BEFORE PATIENT^S ADMISSION
     Route: 065

REACTIONS (2)
  - Haemolytic anaemia [Recovered/Resolved]
  - Product supply issue [Unknown]
